FAERS Safety Report 14998276 (Version 1)
Quarter: 2018Q2

REPORT INFORMATION
  Report Type: Spontaneous
  Country: FR (occurrence: FR)
  Receive Date: 20180611
  Receipt Date: 20180611
  Transmission Date: 20180711
  Serious: Yes (Hospitalization)
  Sender: FDA-Public Use
  Company Number: FR-ALLERGAN-1829784US

PATIENT
  Age: 64 Year
  Sex: Male
  Weight: 85 kg

DRUGS (7)
  1. TRIATEC (CODEINE PHOSPHATE/PARACETAMOL) [Interacting]
     Active Substance: ACETAMINOPHEN\CODEINE PHOSPHATE
     Indication: INFARCTION
     Dosage: 5 MG, QD
     Route: 048
     Dates: start: 20180306
  2. TAHOR [Concomitant]
     Active Substance: ATORVASTATIN CALCIUM
     Indication: PRODUCT USED FOR UNKNOWN INDICATION
     Dosage: 80 MG
  3. INSPRA (MONTELUKAST SODIUM) [Interacting]
     Active Substance: MONTELUKAST SODIUM
     Indication: INFARCTION
     Dosage: 25 MG, QD
     Route: 048
     Dates: start: 20180306
  4. AVODART [Interacting]
     Active Substance: DUTASTERIDE
     Indication: PROSTATOMEGALY
     Dosage: 0.5 MG, QD
     Route: 048
     Dates: start: 20180327
  5. SILODOSIN - BP [Suspect]
     Active Substance: SILODOSIN
     Indication: PROSTATOMEGALY
     Dosage: 8 MG, QD
     Route: 048
     Dates: start: 20180327
  6. BISOPROLOL BIOGARAN [Interacting]
     Active Substance: BISOPROLOL FUMARATE
     Indication: INFARCTION
     Dosage: 5 MG, QD
     Route: 048
     Dates: start: 20180306
  7. CARDENSIEL [Interacting]
     Active Substance: BISOPROLOL FUMARATE
     Indication: INFARCTION
     Dosage: 2.5 MG, QD
     Route: 048
     Dates: start: 20180101, end: 20180306

REACTIONS (4)
  - Dyspnoea [Not Recovered/Not Resolved]
  - Condition aggravated [Not Recovered/Not Resolved]
  - Drug interaction [Unknown]
  - Dizziness [Not Recovered/Not Resolved]

NARRATIVE: CASE EVENT DATE: 201802
